FAERS Safety Report 7321895-8 (Version None)
Quarter: 2011Q1

REPORT INFORMATION
  Report Type: 
  Country: None (occurrence: None)
  Receive Date: 20110228
  Receipt Date: 20110218
  Transmission Date: 20110831
  Serious: Yes (Hospitalization, Other)
  Sender: FDA-Public Use
  Company Number: US-ROCHE-632807

PATIENT
  Sex: Male
  Weight: 77.1 kg

DRUGS (4)
  1. ACCUTANE [Suspect]
     Route: 048
     Dates: start: 20030121, end: 20030209
  2. CLINDAMYCIN [Concomitant]
     Dosage: EVERY MORNING
  3. BREVOXYL [Concomitant]
  4. ACCUTANE [Suspect]
     Route: 048
     Dates: end: 20030301

REACTIONS (7)
  - DEPRESSION [None]
  - HEADACHE [None]
  - COLITIS ULCERATIVE [None]
  - CROHN'S DISEASE [None]
  - IRRITABLE BOWEL SYNDROME [None]
  - INFLAMMATORY BOWEL DISEASE [None]
  - SUICIDAL IDEATION [None]
